FAERS Safety Report 5746063-2 (Version None)
Quarter: 2008Q2

REPORT INFORMATION
  Report Type: 
  Country: None (occurrence: None)
  Receive Date: 20080519
  Receipt Date: 20080220
  Transmission Date: 20081010
  Serious: No
  Sender: FDA-Public Use
  Company Number: TPA2008A00237

PATIENT
  Age: 61 Year
  Sex: Female
  Weight: 87.9978 kg

DRUGS (13)
  1. ROZEREM [Suspect]
     Indication: INITIAL INSOMNIA
     Dosage: 8 MG, HS, PER ORAL
     Route: 048
     Dates: start: 20071101
  2. ROZEREM [Suspect]
     Indication: MIDDLE INSOMNIA
     Dosage: 8 MG, HS, PER ORAL
     Route: 048
     Dates: start: 20071101
  3. ALPRAZOLAM [Concomitant]
  4. NEURONTIN [Concomitant]
  5. PHENAZOPYRIDINE (PHENAZOPYRIDINE) [Concomitant]
  6. OXYCODONE (OXYCODONE) (5 MILLIGRAM) [Concomitant]
  7. AMITRIPTLINE HYDROCHLORIDE TAB [Concomitant]
  8. SYNTHROID [Concomitant]
  9. NEXIUM [Concomitant]
  10. METOCLOPRAMIDE [Concomitant]
  11. FENTANYL [Concomitant]
  12. CITRACAL (CALCIUM CITRATE) [Concomitant]
  13. MULTIVITAMIN [Concomitant]

REACTIONS (1)
  - MIDDLE INSOMNIA [None]
